FAERS Safety Report 5166844-6 (Version None)
Quarter: 2006Q4

REPORT INFORMATION
  Report Type: 
  Country: None (occurrence: None)
  Receive Date: 20061207
  Receipt Date: 20060811
  Transmission Date: 20070319
  Serious: Yes (Hospitalization)
  Sender: FDA-Public Use
  Company Number: FR-ROCHE-459756

PATIENT
  Age: 25 Year
  Sex: Female

DRUGS (6)
  1. RIVOTRIL [Suspect]
     Indication: DRUG USE FOR UNKNOWN INDICATION
     Dosage: NO DETAILS PROVIDED.
     Route: 048
  2. BETASERON [Suspect]
     Indication: MULTIPLE SCLEROSIS
     Dosage: FORM REPORTE AS INJECTABLE SOLUTION.
     Route: 058
     Dates: start: 20051101
  3. PRAZEPAM [Suspect]
     Indication: ANXIETY
     Dosage: NO DETAILS PROVIDED.
     Route: 048
  4. ACETAMINOPHEN W/ PROPOXYPHENE HCL [Suspect]
     Indication: DRUG USE FOR UNKNOWN INDICATION
     Dosage: NO DETAILS PROVIDED.
     Route: 048
  5. AMOXICILLIN [Suspect]
     Dosage: NO DETAILS PROVIDED.
     Route: 048
     Dates: start: 20060629
  6. DEBRIDAT [Suspect]
     Indication: DRUG USE FOR UNKNOWN INDICATION
     Dosage: NO DETAILS PROVIDED.
     Route: 048

REACTIONS (1)
  - ILEITIS [None]
